FAERS Safety Report 12654880 (Version 1)
Quarter: 2016Q3

REPORT INFORMATION
  Report Type: Spontaneous
  Country: FR (occurrence: FR)
  Receive Date: 20160816
  Receipt Date: 20160816
  Transmission Date: 20161109
  Serious: Yes (Hospitalization)
  Sender: FDA-Public Use
  Company Number: FR-PFIZER INC-2016382568

PATIENT
  Age: 80 Year
  Sex: Male

DRUGS (13)
  1. LASILIX SPECIAL /00032601/ [Suspect]
     Active Substance: FUROSEMIDE
     Dosage: 250 MG, 1X/DAY
     Route: 048
  2. KREDEX [Suspect]
     Active Substance: CARVEDILOL
     Dosage: 25 MG, 2X/DAY
     Route: 048
  3. IMOVANE [Suspect]
     Active Substance: ZOPICLONE
     Dosage: 7.5 MG, 1X/DAY
     Route: 048
  4. LYRICA [Suspect]
     Active Substance: PREGABALIN
     Dosage: 25 MG, 1X/DAY
     Route: 048
  5. TRIATEC /00885601/ [Concomitant]
     Active Substance: RAMIPRIL
     Dosage: 10 MG, 1X/DAY
     Route: 048
  6. INSPRA [Concomitant]
     Active Substance: EPLERENONE
     Dosage: 25 MG, 1X/DAY
     Route: 048
  7. INEXIUM /01479302/ [Concomitant]
     Active Substance: ESOMEPRAZOLE MAGNESIUM
     Dosage: 20 MG, 1X/DAY
     Route: 048
  8. PRADAXA [Concomitant]
     Active Substance: DABIGATRAN ETEXILATE MESYLATE
     Dosage: 220 MG, DAILY
     Route: 048
  9. HEMIGOXINE NATIVELLE [Suspect]
     Active Substance: DIGOXIN
     Dosage: 0.125 MG, 1X/DAY
     Route: 048
  10. LAROXYL [Suspect]
     Active Substance: AMITRIPTYLINE
     Dosage: 10 GTT, 1X/DAY
     Route: 048
  11. ADENURIC [Concomitant]
     Active Substance: FEBUXOSTAT
     Dosage: 80 MG, 1X/DAY
     Route: 048
  12. LYRICA [Suspect]
     Active Substance: PREGABALIN
     Dosage: 25 MG, 2X/DAY
     Route: 048
  13. IXPRIM [Suspect]
     Active Substance: ACETAMINOPHEN\TRAMADOL HYDROCHLORIDE
     Dosage: 1 DF THRICE DAILY AS NEEDED
     Route: 048

REACTIONS (2)
  - Bradycardia [Recovered/Resolved]
  - Fall [Recovered/Resolved]

NARRATIVE: CASE EVENT DATE: 20160322
